FAERS Safety Report 5068365-8 (Version None)
Quarter: 2006Q3

REPORT INFORMATION
  Report Type: 
  Country: None (occurrence: None)
  Receive Date: 20060802
  Receipt Date: 20050822
  Transmission Date: 20061208
  Serious: No
  Sender: FDA-Public Use
  Company Number: US-BRISTOL-MYERS SQUIBB COMPANY-13085741

PATIENT
  Sex: Female

DRUGS (1)
  1. COUMADIN [Suspect]

REACTIONS (5)
  - BURNING SENSATION [None]
  - PAIN [None]
  - SWELLING [None]
  - TONGUE OEDEMA [None]
  - VISION BLURRED [None]
